FAERS Safety Report 8165663-6 (Version None)
Quarter: 2012Q1

REPORT INFORMATION
  Report Type: 
  Country: None (occurrence: None)
  Receive Date: 20120223
  Receipt Date: 20120223
  Transmission Date: 20120608
  Serious: Yes (Other)
  Sender: FDA-Public Use
  Company Number: None

PATIENT
  Sex: Female
  Weight: 72.5755 kg

DRUGS (1)
  1. OMEPRAZOLE [Suspect]
     Indication: GASTROOESOPHAGEAL REFLUX DISEASE
     Dosage: 1 CAP - 20MG 1 DAILY
     Dates: start: 20091105, end: 20120123

REACTIONS (5)
  - PARAESTHESIA [None]
  - BACK PAIN [None]
  - MIDDLE INSOMNIA [None]
  - HYPOAESTHESIA [None]
  - POOR QUALITY SLEEP [None]
